FAERS Safety Report 4555606-6 (Version None)
Quarter: 2005Q1

REPORT INFORMATION
  Report Type: 
  Country: None (occurrence: None)
  Receive Date: 20050118
  Receipt Date: 20040929
  Transmission Date: 20050727
  Serious: Yes (Hospitalization)
  Sender: FDA-Public Use
  Company Number: A03200403113

PATIENT
  Age: 87 Year
  Sex: Male
  Weight: 92.5338 kg

DRUGS (5)
  1. UROXATRAL [Suspect]
     Indication: BENIGN PROSTATIC HYPERPLASIA
     Dosage: 10 MG ONCE ORAL
     Route: 048
     Dates: start: 20040721, end: 20040721
  2. VALSARTAN [Concomitant]
  3. DIGOXIN [Concomitant]
  4. METOPROLOL SUCCINATE [Concomitant]
  5. ACETYLSALICYLIC ACID SRT [Concomitant]

REACTIONS (4)
  - DIZZINESS [None]
  - ORTHOSTATIC HYPOTENSION [None]
  - SYNCOPE [None]
  - TACHYPNOEA [None]
